FAERS Safety Report 8205557-0 (Version None)
Quarter: 2012Q1

REPORT INFORMATION
  Report Type: 
  Country: None (occurrence: None)
  Receive Date: 20120313
  Receipt Date: 20120228
  Transmission Date: 20120608
  Serious: Yes (Death, Hospitalization)
  Sender: FDA-Public Use
  Company Number: JP-ACTELION-A-CH2012-62020

PATIENT
  Sex: Female

DRUGS (9)
  1. TRACLEER [Suspect]
     Indication: RAYNAUD'S PHENOMENON
     Dosage: 125 MG, BID
     Route: 048
     Dates: start: 20080811, end: 20100105
  2. TRACLEER [Suspect]
     Dosage: 62.5 MG, BID
     Route: 048
     Dates: start: 20080730, end: 20080810
  3. CILOSTAZOL [Concomitant]
  4. ALENDRONATE SODIUM [Concomitant]
  5. MIZORIBINE [Concomitant]
  6. TACROLIMUS [Concomitant]
  7. SPIRONOLACTONE [Concomitant]
  8. PREDNISOLONE [Concomitant]
  9. FUROSEMIDE [Concomitant]

REACTIONS (9)
  - ASPARTATE AMINOTRANSFERASE INCREASED [None]
  - BLOOD BILIRUBIN INCREASED [None]
  - BILIRUBIN CONJUGATED INCREASED [None]
  - OESOPHAGEAL VARICES HAEMORRHAGE [None]
  - BLOOD ALKALINE PHOSPHATASE INCREASED [None]
  - ALANINE AMINOTRANSFERASE INCREASED [None]
  - CONCOMITANT DISEASE AGGRAVATED [None]
  - HEPATIC NEOPLASM [None]
  - GAMMA-GLUTAMYLTRANSFERASE INCREASED [None]
